FAERS Safety Report 11969166 (Version 1)
Quarter: 2016Q1

REPORT INFORMATION
  Report Type: Report from Study
  Country: US (occurrence: US)
  Receive Date: 20160128
  Receipt Date: 20160128
  Transmission Date: 20160526
  Serious: No
  Sender: FDA-Public Use
  Company Number: PHEH2015US004973

PATIENT
  Age: 33 Year
  Sex: Female

DRUGS (3)
  1. TASIGNA [Suspect]
     Active Substance: NILOTINIB
     Dosage: 600 MG, UNK
     Route: 048
  2. TASIGNA [Suspect]
     Active Substance: NILOTINIB
     Indication: CHRONIC MYELOID LEUKAEMIA
     Dosage: 800 MG, UNK
     Route: 048
     Dates: start: 20130314
  3. TASIGNA [Suspect]
     Active Substance: NILOTINIB
     Dosage: 300 MG, UNK
     Route: 048

REACTIONS (9)
  - Confusional state [Recovering/Resolving]
  - Dyspepsia [Recovering/Resolving]
  - Premenstrual syndrome [Recovering/Resolving]
  - Fatigue [Recovering/Resolving]
  - Pain of skin [Recovering/Resolving]
  - Pain [Recovering/Resolving]
  - Vision blurred [Recovering/Resolving]
  - Cyst [Recovering/Resolving]
  - Menorrhagia [Recovering/Resolving]

NARRATIVE: CASE EVENT DATE: 201303
